FAERS Safety Report 8018678-2 (Version None)
Quarter: 2012Q1

REPORT INFORMATION
  Report Type: 
  Country: None (occurrence: None)
  Receive Date: 20120103
  Receipt Date: 20120103
  Transmission Date: 20120608
  Serious: Yes (Other)
  Sender: FDA-Public Use
  Company Number: None

PATIENT
  Sex: Male
  Weight: 90.718 kg

DRUGS (1)
  1. LARIAM [Suspect]

REACTIONS (5)
  - MOOD SWINGS [None]
  - NIGHT SWEATS [None]
  - DEPRESSION [None]
  - VERTIGO [None]
  - GASTRIC ULCER HAEMORRHAGE [None]
